FAERS Safety Report 5669711-4 (Version None)
Quarter: 2008Q1

REPORT INFORMATION
  Report Type: 
  Country: None (occurrence: None)
  Receive Date: 20080317
  Receipt Date: 20080306
  Transmission Date: 20080703
  Serious: Yes (Hospitalization)
  Sender: FDA-Public Use
  Company Number: US-WYE-H02980808

PATIENT
  Sex: Female
  Weight: 43.13 kg

DRUGS (9)
  1. PROTONIX [Suspect]
     Indication: GASTRIC ULCER
     Dosage: DOSE AND FREQUENCY UNSPECIFIED
     Route: 048
     Dates: start: 20080130
  2. MS CONTIN [Suspect]
     Dosage: DOSE AND FREQUENCY UNSPECIFIED
     Route: 048
     Dates: start: 20071017
  3. COMPAZINE [Suspect]
     Dosage: DOSE AND FREQUENCY UNSPECIFIED
     Route: 048
     Dates: start: 20071031
  4. DIPHENHYDRAMINE HCL [Suspect]
     Dosage: DOSE AND FREQUENCY UNSPECIFIED
     Dates: start: 20071220, end: 20071221
  5. BACTRIM DS [Suspect]
     Dosage: DOSE AND FREQUENCY UNSPECIFIED
     Route: 048
     Dates: start: 20080207
  6. LORTAB [Suspect]
     Dosage: DOSE AND FREQUENCY UNSPECIFIED
     Route: 048
     Dates: start: 20071010
  7. PREDNISOLONE [Suspect]
     Dosage: DOSE AND FREQUENCY UNSPECIFIED
     Dates: start: 20071220, end: 20071221
  8. PACLITAXEL [Suspect]
     Indication: BREAST CANCER
     Dosage: 130 MG/M2 EVERY WEEK FOR 3 WEEKS
     Route: 042
     Dates: start: 20071031
  9. POTASSIUM CHLORIDE [Suspect]
     Dosage: DOSE AND FREQUENCY UNSPECIFIED
     Route: 048
     Dates: start: 20080130

REACTIONS (5)
  - CHEST PAIN [None]
  - DEEP VEIN THROMBOSIS [None]
  - DIARRHOEA [None]
  - DYSPNOEA [None]
  - NAUSEA [None]
